FAERS Safety Report 14603517 (Version 1)
Quarter: 2018Q1

REPORT INFORMATION
  Report Type: Report from Study
  Country: CA (occurrence: CA)
  Receive Date: 20180306
  Receipt Date: 20180306
  Transmission Date: 20180509
  Serious: Yes (Hospitalization, Other)
  Sender: FDA-Public Use
  Company Number: CA-RECRO GAINESVILLE LLC-REPH-2018-000001

PATIENT
  Age: 42 Year
  Sex: Female

DRUGS (1)
  1. VERAPAMIL HYDROCHLORIDE SUSTAINED RELEASE [Suspect]
     Active Substance: VERAPAMIL HYDROCHLORIDE
     Indication: INTENTIONAL PRODUCT MISUSE
     Dosage: 7.2 G, ONE TIME DOSE
     Route: 048

REACTIONS (18)
  - Blood glucose increased [Recovered/Resolved]
  - Heart rate decreased [Recovered/Resolved]
  - Blood bicarbonate decreased [None]
  - Atrioventricular block complete [Recovered/Resolved]
  - Depressed level of consciousness [Recovered/Resolved]
  - Metabolic acidosis [Recovered/Resolved]
  - Atrioventricular block first degree [Recovered/Resolved]
  - Blood lactic acid increased [None]
  - Bundle branch block right [Recovered/Resolved]
  - Treatment failure [None]
  - Pulmonary oedema [Recovered/Resolved]
  - Intentional overdose [Recovered/Resolved]
  - Blood pressure decreased [Recovered/Resolved]
  - Oliguria [None]
  - Ventricular hypokinesia [Recovered/Resolved]
  - Anion gap increased [None]
  - Blood glucose increased [None]
  - Pulmonary arterial wedge pressure increased [None]
